FAERS Safety Report 8487689-5 (Version None)
Quarter: 2012Q2

REPORT INFORMATION
  Report Type: 
  Country: None (occurrence: None)
  Receive Date: 20120606
  Receipt Date: 20120530
  Transmission Date: 20120825
  Serious: Yes (Other)
  Sender: FDA-Public Use
  Company Number: 2012030992

PATIENT
  Age: 70 Year
  Sex: Female

DRUGS (1)
  1. VIVAGLOBIN [Suspect]
     Indication: RESPIRATORY TRACT INFECTION
     Dates: start: 20110909, end: 20111027

REACTIONS (15)
  - HEADACHE [None]
  - DYSPHAGIA [None]
  - VERTIGO [None]
  - BONE PAIN [None]
  - DISTURBANCE IN ATTENTION [None]
  - VISION BLURRED [None]
  - EAR PAIN [None]
  - ARTHRALGIA [None]
  - SYNCOPE [None]
  - EYE PAIN [None]
  - FATIGUE [None]
  - OFF LABEL USE [None]
  - CHILLS [None]
  - PAIN [None]
  - DIARRHOEA HAEMORRHAGIC [None]
